FAERS Safety Report 15811389 (Version 3)
Quarter: 2019Q2

REPORT INFORMATION
  Report Type: Report from Study
  Country: US (occurrence: US)
  Receive Date: 20190111
  Receipt Date: 20190522
  Transmission Date: 20190711
  Serious: Yes (Hospitalization)
  Sender: FDA-Public Use
  Company Number: US-ROCHE-2243350

PATIENT
  Age: 71 Year
  Sex: Male
  Weight: 51.1 kg

DRUGS (2)
  1. TEMOZOLOMIDE. [Suspect]
     Active Substance: TEMOZOLOMIDE
     Indication: GLIOBLASTOMA MULTIFORME
     Dosage: LAST DOSE ON 16/DEC/2018
     Route: 048
     Dates: start: 20181212
  2. ATEZOLIZUMAB. [Suspect]
     Active Substance: ATEZOLIZUMAB
     Indication: GLIOBLASTOMA MULTIFORME
     Dosage: LAST DOSE ON 26/DEC/2018
     Route: 042
     Dates: start: 20180912

REACTIONS (6)
  - Pain in extremity [Unknown]
  - Dehydration [Unknown]
  - Paraesthesia [Unknown]
  - Pneumonia [Unknown]
  - Sepsis [Recovered/Resolved]
  - Fatigue [Unknown]

NARRATIVE: CASE EVENT DATE: 20190102
